FAERS Safety Report 4348303-3 (Version None)
Quarter: 2004Q2

REPORT INFORMATION
  Report Type: 
  Country: None (occurrence: None)
  Receive Date: 20040422
  Receipt Date: 20040323
  Transmission Date: 20050107
  Serious: Yes (Death)
  Sender: FDA-Public Use
  Company Number: 2004-BP-02088RA

PATIENT
  Age: 82 Year
  Sex: Female

DRUGS (2)
  1. SPIRIVA [Suspect]
     Indication: CHRONIC OBSTRUCTIVE AIRWAYS DISEASE
     Dosage: 18 MCG (18 MCG, 18 MCG/D), IH
     Route: 055
     Dates: start: 20040101, end: 20040101
  2. NON SSPECIFIED DRUGS [Concomitant]

REACTIONS (1)
  - CARDIAC ARREST [None]
